FAERS Safety Report 4504923-4 (Version None)
Quarter: 2004Q4

REPORT INFORMATION
  Report Type: 
  Country: None (occurrence: None)
  Receive Date: 20041020
  Receipt Date: 20040826
  Transmission Date: 20050328
  Serious: No
  Sender: FDA-Public Use
  Company Number: 2004-08-1549

PATIENT
  Sex: Female

DRUGS (2)
  1. CLARINEX [Suspect]
     Indication: HYPERSENSITIVITY
     Dosage: 2 TABLETS ORAL
     Route: 048
     Dates: start: 20040825
  2. NASONEX [Concomitant]

REACTIONS (5)
  - AGEUSIA [None]
  - ANOSMIA [None]
  - DRUG INEFFECTIVE [None]
  - FEELING ABNORMAL [None]
  - INTENTIONAL OVERDOSE [None]
